FAERS Safety Report 10527072 (Version 1)
Quarter: 2014Q4

REPORT INFORMATION
  Report Type: Spontaneous
  Country: US (occurrence: None)
  Receive Date: 20141017
  Receipt Date: 20141017
  Transmission Date: 20150528
  Serious: Yes (Other)
  Sender: FDA-Public Use
  Company Number: None

PATIENT
  Age: 50 Year
  Sex: Male
  Weight: 74.84 kg

DRUGS (3)
  1. BUPROPION (EXTENDED RELEASE) [Suspect]
     Active Substance: BUPROPION
     Indication: DEPRESSION
     Route: 048
     Dates: start: 201211, end: 201402
  2. BUPROPION (EXTENDED RELEASE) [Suspect]
     Active Substance: BUPROPION
     Indication: ANXIETY
     Route: 048
     Dates: start: 201211, end: 201402
  3. BUPROPION (EXTENDED RELEASE) [Suspect]
     Active Substance: BUPROPION
     Route: 048
     Dates: start: 201403, end: 201407

REACTIONS (9)
  - Tinnitus [None]
  - Quality of life decreased [None]
  - Anxiety [None]
  - Agitation [None]
  - Vision blurred [None]
  - Product substitution issue [None]
  - Vertigo [None]
  - Tremor [None]
  - Product quality issue [None]

NARRATIVE: CASE EVENT DATE: 201311
